FAERS Safety Report 7222782-6 (Version None)
Quarter: 2011Q1

REPORT INFORMATION
  Report Type: 
  Country: None (occurrence: None)
  Receive Date: 20110106
  Receipt Date: 20110106
  Transmission Date: 20110831
  Serious: Yes (Hospitalization)
  Sender: FDA-Public Use
  Company Number: None

PATIENT
  Age: 73 Year
  Sex: Female
  Weight: 56.4 kg

DRUGS (15)
  1. PERCOCET [Suspect]
     Dosage: CHRONIC
  2. XANAX [Suspect]
     Dosage: CHRONIC
  3. ASPIRIN [Concomitant]
  4. DILTIAZEM [Concomitant]
  5. LIPITOR [Concomitant]
  6. DARVOCET-N 100 [Suspect]
     Dosage: CHRONIC
  7. HUMALOG [Concomitant]
  8. RANITIDINE [Concomitant]
  9. CELEBREX [Concomitant]
  10. RESTORIL [Suspect]
     Indication: SLEEP DISORDER
     Dosage: 30MG QHS PO CHRONIC
     Route: 048
  11. AMLODIPINE [Concomitant]
  12. VIT D [Concomitant]
  13. ENALAPRIL MALEATE [Concomitant]
  14. LANTUS [Concomitant]
  15. ADVAIR [Concomitant]

REACTIONS (4)
  - HYPERKALAEMIA [None]
  - HYPONATRAEMIA [None]
  - ACCIDENTAL OVERDOSE [None]
  - MENTAL STATUS CHANGES [None]
